FAERS Safety Report 16017555 (Version 1)
Quarter: 2019Q1

REPORT INFORMATION
  Report Type: Spontaneous
  Country: US (occurrence: US)
  Receive Date: 20190204
  Receipt Date: 20190204
  Transmission Date: 20190418
  Serious: Yes (Hospitalization, Disabling)
  Sender: FDA-Public Use
  Company Number: None

PATIENT
  Age: 17 Month
  Sex: Male
  Weight: 10.6 kg

DRUGS (8)
  1. TRILEPTAL [Suspect]
     Active Substance: OXCARBAZEPINE
  2. OXCARBAZEPINE. [Concomitant]
     Active Substance: OXCARBAZEPINE
  3. ONFI [Suspect]
     Active Substance: CLOBAZAM
  4. AMOXICILLIN. [Suspect]
     Active Substance: AMOXICILLIN
  5. CLOBAZAM. [Concomitant]
     Active Substance: CLOBAZAM
  6. VALPROIC ACID. [Concomitant]
     Active Substance: VALPROIC ACID
  7. LEVETRIACETAM [Concomitant]
     Active Substance: LEVETIRACETAM
  8. DEPAKOTE [Suspect]
     Active Substance: DIVALPROEX SODIUM

REACTIONS (12)
  - Rash [None]
  - Mucosal inflammation [None]
  - Post procedural complication [None]
  - Lip swelling [None]
  - Otitis media acute [None]
  - Large intestine perforation [None]
  - Necrosis [None]
  - Respiratory failure [None]
  - Stevens-Johnson syndrome [None]
  - Intestinal ischaemia [None]
  - Swollen tongue [None]
  - Dermatitis bullous [None]

NARRATIVE: CASE EVENT DATE: 20181102
